FAERS Safety Report 12282090 (Version 2)
Quarter: 2016Q3

REPORT INFORMATION
  Report Type: Spontaneous
  Country: US (occurrence: US)
  Receive Date: 20160419
  Receipt Date: 20160808
  Transmission Date: 20161109
  Serious: No
  Sender: FDA-Public Use
  Company Number: US-PFIZER INC-2016184619

PATIENT
  Age: 53 Year
  Sex: Female

DRUGS (1)
  1. PREMARIN [Suspect]
     Active Substance: ESTROGENS, CONJUGATED
     Indication: HOT FLUSH
     Dosage: 0.625 MG, 1X/DAY
     Route: 048

REACTIONS (2)
  - Drug hypersensitivity [Unknown]
  - Mood swings [Recovering/Resolving]
